FAERS Safety Report 7355265-3 (Version None)
Quarter: 2011Q1

REPORT INFORMATION
  Report Type: 
  Country: None (occurrence: None)
  Receive Date: 20110316
  Receipt Date: 20110308
  Transmission Date: 20110831
  Serious: Yes (Death, Hospitalization, Other)
  Sender: FDA-Public Use
  Company Number: KR-GENZYME-THYM-1002281

PATIENT
  Sex: Female
  Weight: 16 kg

DRUGS (16)
  1. THYMOGLOBULIN [Suspect]
     Indication: ACUTE LYMPHOCYTIC LEUKAEMIA RECURRENT
     Dosage: 37.5 MG, QD
     Route: 042
     Dates: start: 20110112, end: 20110112
  2. THYMOGLOBULIN [Suspect]
     Dosage: UNK
     Route: 042
     Dates: start: 20090303, end: 20090305
  3. MELPHALAN [Concomitant]
     Indication: ACUTE LYMPHOCYTIC LEUKAEMIA RECURRENT
     Dosage: 90 MG, QD
     Route: 042
     Dates: start: 20110112, end: 20110112
  4. ANTIHISTAMINES [Concomitant]
     Indication: PREMEDICATION
     Dosage: UNK
     Dates: start: 20090303, end: 20090305
  5. HEPARIN [Concomitant]
     Indication: PROPHYLAXIS
     Dosage: 1500 IU, UNK
     Route: 042
     Dates: start: 20110118, end: 20110120
  6. TYLENOL-500 [Concomitant]
     Indication: PREMEDICATION
     Dosage: 150 MG, QD
     Route: 048
     Dates: start: 20110112, end: 20110114
  7. CHLORPHENAMINE [Concomitant]
     Indication: PREMEDICATION
     Dosage: 2 MG, QD
     Dates: start: 20110112, end: 20110114
  8. FLUDARA [Suspect]
     Indication: BONE MARROW CONDITIONING REGIMEN
  9. MELPHALAN [Concomitant]
     Indication: BONE MARROW CONDITIONING REGIMEN
  10. SOL MEDROL [Concomitant]
     Indication: PREMEDICATION
     Dosage: 15 MG, QD
     Dates: start: 20110112, end: 20110114
  11. THYMOGLOBULIN [Suspect]
     Indication: BONE MARROW TRANSPLANT
     Dosage: 37.5 MG, QD
     Route: 042
     Dates: start: 20110113, end: 20110114
  12. FLUDARA [Suspect]
     Indication: ACUTE LYMPHOCYTIC LEUKAEMIA RECURRENT
     Dosage: 25 MG, QD
     Route: 042
     Dates: start: 20110108, end: 20110112
  13. RANITIDINE [Concomitant]
     Indication: PROPHYLAXIS
     Dosage: 15 MG, Q12HR
     Route: 042
     Dates: start: 20110118, end: 20110126
  14. PROSTAGLANDIN E1 [Concomitant]
     Indication: PROPHYLAXIS
     Dosage: 10 MCG, UNK
     Route: 042
     Dates: start: 20110118, end: 20110126
  15. ACETAMINOPHEN [Concomitant]
     Indication: PREMEDICATION
     Dosage: UNK
     Dates: start: 20090303, end: 20090305
  16. CORTICOSTEROIDS [Concomitant]
     Indication: PREMEDICATION
     Dosage: UNK
     Dates: start: 20090303, end: 20090305

REACTIONS (10)
  - MULTI-ORGAN FAILURE [None]
  - LYMPHOCYTE COUNT INCREASED [None]
  - SHOCK [None]
  - DRUG INEFFECTIVE [None]
  - RENAL FAILURE ACUTE [None]
  - BLOOD PRESSURE DECREASED [None]
  - PULMONARY OEDEMA [None]
  - HYPOXIA [None]
  - CYTOKINE RELEASE SYNDROME [None]
  - PYREXIA [None]
